FAERS Safety Report 6839856-1 (Version None)
Quarter: 2010Q3

REPORT INFORMATION
  Report Type: 
  Country: None (occurrence: None)
  Receive Date: 20100714
  Receipt Date: 20100702
  Transmission Date: 20110219
  Serious: Yes (Hospitalization, Other)
  Sender: FDA-Public Use
  Company Number: US-PFIZER INC-2009260574

PATIENT
  Age: 50 Year
  Sex: Female
  Weight: 54.43 kg

DRUGS (7)
  1. CHANTIX [Suspect]
     Indication: SMOKING CESSATION THERAPY
     Dosage: 1 MG, 2X/DAY
     Route: 048
     Dates: start: 20080302
  2. NICORETTE [Concomitant]
     Dosage: UNK
  3. INSULIN DETEMIR [Concomitant]
     Dosage: UNK
     Route: 058
  4. NOVOLOG [Concomitant]
     Dosage: UNK
     Route: 058
  5. LORTAB [Concomitant]
     Dosage: UNK
     Route: 048
  6. OXYCONTIN [Concomitant]
     Dosage: 40 MG, 2X/DAY
     Route: 048
  7. CANNABIS [Concomitant]
     Dosage: UNK

REACTIONS (9)
  - DEPRESSION [None]
  - HYPOGLYCAEMIA [None]
  - HYPOTHERMIA [None]
  - MEMORY IMPAIRMENT [None]
  - MENTAL STATUS CHANGES [None]
  - PSYCHOTIC DISORDER [None]
  - SCRATCH [None]
  - TRICHOTILLOMANIA [None]
  - WOUND [None]
